FAERS Safety Report 10101476 (Version 1)
Quarter: 2014Q2

REPORT INFORMATION
  Report Type: Spontaneous
  Country: IT (occurrence: None)
  Receive Date: 20140422
  Receipt Date: 20140422
  Transmission Date: 20141212
  Serious: Yes (Hospitalization)
  Sender: FDA-Public Use
  Company Number: AUR-APL-2014-04715

PATIENT
  Age: 80 Year
  Sex: Male

DRUGS (3)
  1. OLANZAPINE [Suspect]
     Indication: PSYCHOTIC DISORDER
     Dates: end: 20140325
  2. VALDORM (FLURAZEPAM HYDROCHLORIDE) [Concomitant]
  3. EN (DELORAZEPAM) [Concomitant]

REACTIONS (2)
  - Psychomotor hyperactivity [None]
  - Sopor [None]
